FAERS Safety Report 7802334-7 (Version None)
Quarter: 2011Q4

REPORT INFORMATION
  Report Type: 
  Country: None (occurrence: None)
  Receive Date: 20111007
  Receipt Date: 20110930
  Transmission Date: 20120403
  Serious: Yes (Other)
  Sender: FDA-Public Use
  Company Number: DE-UCBSA-041239

PATIENT
  Age: 70 Year
  Sex: Male
  Weight: 113 kg

DRUGS (2)
  1. KEPPRA [Suspect]
     Indication: POST-TRAUMATIC EPILEPSY
     Route: 048
     Dates: start: 20050101
  2. AZACYTIDINE [Concomitant]

REACTIONS (3)
  - LEUKAEMIA [None]
  - WHITE BLOOD CELL COUNT DECREASED [None]
  - HAEMOGLOBIN DECREASED [None]
